FAERS Safety Report 13036113 (Version 1)
Quarter: 2016Q4

REPORT INFORMATION
  Report Type: Not Available
  Country: IT (occurrence: IT)
  Receive Date: 20161216
  Receipt Date: 20161216
  Transmission Date: 20170207
  Serious: Yes (Other)
  Sender: FDA-Public Use
  Company Number: IT-MUNDIPHARMA DS AND PHARMACOVIGILANCE-GBR-2016-0042088

PATIENT
  Age: 76 Year
  Sex: Female

DRUGS (7)
  1. LYRICA [Suspect]
     Active Substance: PREGABALIN
     Indication: PAIN
     Dosage: 2 UNIT, DAILY [STRENGTH 300 MG]
     Route: 048
     Dates: start: 20161101, end: 20161104
  2. PARACETAMOL WITH CODEINE PHOSPHATE [Suspect]
     Active Substance: ACETAMINOPHEN\CODEINE PHOSPHATE
     Indication: TOOTHACHE
     Dosage: 1 UNIT, DAILY [STRENGTH 500/30 MG]
     Route: 048
     Dates: start: 20161101, end: 20161104
  3. TARGIN [Suspect]
     Active Substance: NALOXONE HYDROCHLORIDE\OXYCODONE HYDROCHLORIDE
     Indication: PAIN
     Dosage: 2 UNIT, DAILY [STRENGTH 10/5 MG]
     Route: 048
     Dates: start: 20161101, end: 20161104
  4. EUTIROX [Concomitant]
     Active Substance: LEVOTHYROXINE SODIUM
     Dosage: STRENGHT 50 MCG
     Route: 048
  5. LANTUS [Concomitant]
     Active Substance: INSULIN GLARGINE
     Dosage: 6 INTERNATIONAL UNITS (LESS THAN 100)
     Route: 058
  6. LIORESAL [Concomitant]
     Active Substance: BACLOFEN
     Dosage: 0.5 POSOLOGIC (STRENGHT 25MG)
     Route: 048
  7. HUMALOG [Concomitant]
     Active Substance: INSULIN LISPRO
     Dosage: 7 INTERNATIONAL UNITS (LESS THAN 100)
     Route: 058

REACTIONS (1)
  - Sopor [Recovering/Resolving]

NARRATIVE: CASE EVENT DATE: 20161104
